FAERS Safety Report 19841431 (Version 1)
Quarter: 2021Q3

REPORT INFORMATION
  Report Type: Spontaneous
  Country: CA (occurrence: CA)
  Receive Date: 20210915
  Receipt Date: 20210915
  Transmission Date: 20211014
  Serious: No
  Sender: FDA-Public Use
  Company Number: CA-MERZ PHARMACEUTICALS GMBH-21-03298

PATIENT
  Sex: Female

DRUGS (1)
  1. GLYCOPYRRONIUM BROMIDE [Suspect]
     Active Substance: GLYCOPYRROLATE
     Indication: HYPERHIDROSIS
     Dosage: UNKNOWN

REACTIONS (5)
  - Vision blurred [Unknown]
  - Off label use [Unknown]
  - Eye pain [Unknown]
  - Dysuria [Unknown]
  - Hyperphagia [Unknown]
